FAERS Safety Report 4592987-1 (Version None)
Quarter: 2005Q1

REPORT INFORMATION
  Report Type: 
  Country: None (occurrence: None)
  Receive Date: 20050228
  Receipt Date: 20041201
  Transmission Date: 20050727
  Serious: Yes (Life-Threatening, Hospitalization)
  Sender: FDA-Public Use
  Company Number: US-BRISTOL-MYERS SQUIBB COMPANY-12781936

PATIENT
  Age: 56 Year
  Sex: Male
  Weight: 93 kg

DRUGS (3)
  1. ERBITUX [Suspect]
     Indication: COLON CANCER STAGE III
     Dosage: 808 MG X 1, D/C AFTER 15 MINUTES
     Route: 042
     Dates: start: 20041101, end: 20041101
  2. ZOFRAN [Concomitant]
     Indication: PREMEDICATION
     Route: 042
     Dates: start: 20041101, end: 20041101
  3. BENADRYL [Concomitant]
     Indication: PREMEDICATION
     Route: 042
     Dates: start: 20041101, end: 20041101

REACTIONS (3)
  - DYSPHAGIA [None]
  - FLUSHING [None]
  - URTICARIA GENERALISED [None]
